FAERS Safety Report 4706287-X (Version None)
Quarter: 2005Q3

REPORT INFORMATION
  Report Type: 
  Country: None (occurrence: None)
  Receive Date: 20050705
  Receipt Date: 20030605
  Transmission Date: 20060218
  Serious: Yes (Other)
  Sender: FDA-Public Use
  Company Number: JP-SOLVAY-00303001481

PATIENT
  Age: 27493 Day
  Sex: Female
  Weight: 42 kg

DRUGS (6)
  1. SOLANAX [Concomitant]
     Indication: NEUROSIS
     Dosage: DAILY DOSE: 1.2 MG. FREQUENCY:UNKNOWN
     Route: 048
     Dates: start: 20030521, end: 20030531
  2. LUVOX [Suspect]
     Indication: DEPRESSION
     Dosage: DAILY DOSE: 50 MG. FREQUENCY:UNKNOWN
     Route: 048
     Dates: start: 20030521, end: 20030527
  3. GRANDAXIN [Concomitant]
     Indication: NEUROSIS
     Dosage: DAILY DOSE: 150 MG. FREQUENCY:UNKNOWN
     Route: 048
     Dates: start: 20030521, end: 20030531
  4. LUDIOMIL [Suspect]
     Indication: DEPRESSION
     Dosage: DAILY DOSE: 30 MG. FREQUENCY:UNKNOWN
     Route: 048
     Dates: start: 20030527, end: 20030528
  5. CARNACULIN [Concomitant]
     Indication: CATARACT
     Dosage: DAILY DOSE: 150 IU. FREQUENCY:UNKNOWN
     Route: 048
     Dates: start: 20030521, end: 20030531
  6. CYANOCOBALAMIN [Concomitant]
     Indication: CATARACT
     Dosage: DAILY DOSE: 1.5 MG. FREQUENCY:UNKNOWN
     Route: 048
     Dates: start: 20030521, end: 20030531

REACTIONS (5)
  - BLOOD POTASSIUM DECREASED [None]
  - DEHYDRATION [None]
  - HAEMATURIA [None]
  - INAPPROPRIATE ANTIDIURETIC HORMONE SECRETION [None]
  - NEUROLEPTIC MALIGNANT SYNDROME [None]
